FAERS Safety Report 7917253-5 (Version None)
Quarter: 2011Q4

REPORT INFORMATION
  Report Type: 
  Country: None (occurrence: None)
  Receive Date: 20111116
  Receipt Date: 20111102
  Transmission Date: 20120403
  Serious: Yes (Disabling)
  Sender: FDA-Public Use
  Company Number: PHHY2011FR93362

PATIENT
  Sex: Female
  Weight: 68 kg

DRUGS (4)
  1. GLEEVEC [Suspect]
     Indication: CHRONIC MYELOID LEUKAEMIA
     Dosage: 400 MG, DAILY
     Route: 048
     Dates: start: 20101220
  2. FLUTICASONE PROPIONATE/SALMETEROL [Concomitant]
  3. GLEEVEC [Suspect]
     Dosage: 300 MG DAILY
     Route: 048
     Dates: end: 20110920
  4. CORTICOSTEROIDS [Concomitant]

REACTIONS (5)
  - HYPOPNOEA [None]
  - OBSTRUCTIVE AIRWAYS DISORDER [None]
  - COUGH [None]
  - FORCED EXPIRATORY VOLUME DECREASED [None]
  - DYSPNOEA [None]
